FAERS Safety Report 8482743-6 (Version None)
Quarter: 2012Q3

REPORT INFORMATION
  Report Type: 
  Country: None (occurrence: None)
  Receive Date: 20120702
  Receipt Date: 20120625
  Transmission Date: 20120928
  Serious: Yes (Other)
  Sender: FDA-Public Use
  Company Number: JP-JNJFOC-20120601521

PATIENT
  Sex: Male
  Weight: 58 kg

DRUGS (6)
  1. URSODIOL [Concomitant]
     Route: 048
  2. STELARA [Suspect]
     Indication: PSORIASIS
     Route: 058
     Dates: start: 20111021
  3. STELARA [Suspect]
     Route: 058
     Dates: start: 20111118
  4. STELARA [Suspect]
     Route: 058
     Dates: start: 20120302
  5. STELARA [Suspect]
     Route: 058
     Dates: start: 20120511
  6. ISONIAZID [Concomitant]
     Indication: PROPHYLAXIS
     Route: 048
     Dates: start: 20111014, end: 20111215

REACTIONS (1)
  - LIVER DISORDER [None]
